FAERS Safety Report 16965372 (Version 1)
Quarter: 2019Q4

REPORT INFORMATION
  Report Type: Spontaneous
  Country: CN (occurrence: CN)
  Receive Date: 20191028
  Receipt Date: 20191028
  Transmission Date: 20200122
  Serious: Yes (Other)
  Sender: FDA-Public Use
  Company Number: CN-PFIZER INC-2019463969

PATIENT
  Age: 96 Year
  Sex: Female
  Weight: 62 kg

DRUGS (1)
  1. CORDARONE [Suspect]
     Active Substance: AMIODARONE HYDROCHLORIDE
     Indication: ATRIAL FIBRILLATION
     Dosage: 0.2 G, 2X/DAY
     Route: 048
     Dates: start: 20190706, end: 20190829

REACTIONS (4)
  - Sinus bradycardia [Recovered/Resolved]
  - Bundle branch block right [Unknown]
  - Bundle branch block left [Unknown]
  - Pneumonia [Recovered/Resolved]

NARRATIVE: CASE EVENT DATE: 20190707
